FAERS Safety Report 4441835-9 (Version None)
Quarter: 2004Q3

REPORT INFORMATION
  Report Type: 
  Country: None (occurrence: None)
  Receive Date: 20040901
  Receipt Date: 20040819
  Transmission Date: 20050211
  Serious: Yes (Hospitalization)
  Sender: FDA-Public Use
  Company Number: 2004058152

PATIENT
  Age: 73 Year
  Sex: Male

DRUGS (11)
  1. CARDENALIN (DOXAZOSIN) [Suspect]
     Indication: ILL-DEFINED DISORDER
     Dosage: 2 MG, ORAL
     Route: 048
     Dates: start: 20040716
  2. BENIDIPINE HYDROCHLORIDE (BENIDIPINE HYDROCHLORIDE) [Suspect]
     Indication: ILL-DEFINED DISORDER
     Dosage: 4 MG, ORAL
     Route: 048
     Dates: end: 20040101
  3. CANDESARTAN CILEXETIL (CANDESARTAN CILEXETIL) [Suspect]
     Indication: ILL-DEFINED DISORDER
     Dosage: 2 MG, ORAL
     Route: 048
     Dates: end: 20040101
  4. AMLODIPINE BESYLATE [Concomitant]
  5. FUROSEMIDE [Concomitant]
  6. FERROUS CITRATE [Concomitant]
  7. WARFARIN SODIUM [Concomitant]
  8. CIMETIDINE [Concomitant]
  9. ISOSORBIDE DINITRATE [Concomitant]
  10. BROTIZOLAM (BROTIZOLAM) [Concomitant]
  11. ALLOPURINOL [Concomitant]

REACTIONS (3)
  - HYPERTENSION [None]
  - PULMONARY VALVE INCOMPETENCE [None]
  - PURPURA [None]
